FAERS Safety Report 5898953-8 (Version None)
Quarter: 2008Q3

REPORT INFORMATION
  Report Type: 
  Country: None (occurrence: None)
  Receive Date: 20080925
  Receipt Date: 20080916
  Transmission Date: 20090109
  Serious: Yes (Life-Threatening, Hospitalization)
  Sender: FDA-Public Use
  Company Number: DE-PFIZER INC-2008072133

PATIENT
  Sex: Female

DRUGS (3)
  1. SU-011,248 [Suspect]
     Indication: OVARIAN CANCER
     Route: 048
     Dates: start: 20080612
  2. LEVOTHYROXINE SODIUM [Concomitant]
     Route: 048
     Dates: start: 20020701
  3. PANTOZOL [Concomitant]
     Route: 048
     Dates: start: 20080714

REACTIONS (2)
  - ILEUS [None]
  - SEPTIC SHOCK [None]
